FAERS Safety Report 6607727-1 (Version None)
Quarter: 2010Q1

REPORT INFORMATION
  Report Type: 
  Country: None (occurrence: None)
  Receive Date: 20100301
  Receipt Date: 20100223
  Transmission Date: 20100710
  Serious: Yes (Hospitalization)
  Sender: FDA-Public Use
  Company Number: CA-JNJFOC-20100207129

PATIENT
  Sex: Female
  Weight: 56.6 kg

DRUGS (4)
  1. REMICADE [Suspect]
     Indication: CROHN'S DISEASE
     Dosage: COMPLETED LOADING DOSES
     Route: 042
  2. TYLENOL W/ CODEINE [Suspect]
     Indication: PAIN
  3. PREDNISONE [Concomitant]
     Dosage: TAPERING DOSES
     Route: 048
  4. SYNTHROID [Concomitant]
     Route: 048

REACTIONS (8)
  - ABDOMINAL PAIN [None]
  - ARTHRALGIA [None]
  - FATIGUE [None]
  - INCONTINENCE [None]
  - MALAISE [None]
  - PAIN [None]
  - PAIN IN EXTREMITY [None]
  - VOMITING [None]
